FAERS Safety Report 4997813-4 (Version None)
Quarter: 2006Q2

REPORT INFORMATION
  Report Type: 
  Country: None (occurrence: None)
  Receive Date: 20060510
  Receipt Date: 20060308
  Transmission Date: 20061013
  Serious: No
  Sender: FDA-Public Use
  Company Number: US-BRISTOL-MYERS SQUIBB COMPANY-13308200

PATIENT
  Age: 47 Year
  Sex: Male
  Weight: 104 kg

DRUGS (5)
  1. MONOPRIL TABS 40 MG [Suspect]
     Indication: HYPERTENSION
  2. NEXIUM [Concomitant]
  3. ALLOPURINOL [Concomitant]
  4. LORCET-HD [Concomitant]
  5. VALIUM [Concomitant]

REACTIONS (1)
  - LABILE BLOOD PRESSURE [None]
